FAERS Safety Report 15785940 (Version 1)
Quarter: 2019Q1

REPORT INFORMATION
  Report Type: Spontaneous
  Country: US (occurrence: US)
  Receive Date: 20190103
  Receipt Date: 20190103
  Transmission Date: 20190417
  Serious: No
  Sender: FDA-Public Use
  Company Number: None

PATIENT
  Age: 39 Year
  Sex: Male
  Weight: 121.5 kg

DRUGS (1)
  1. LOSARTAN POTASSIUM 100 MG TABLETS [Suspect]
     Active Substance: LOSARTAN POTASSIUM
     Indication: BLOOD PRESSURE MEASUREMENT
     Dosage: ?          QUANTITY:1 TABLET(S);?
     Route: 048
     Dates: start: 20181001, end: 20190102

REACTIONS (2)
  - Syncope [None]
  - Dizziness [None]
